FAERS Safety Report 6011438-3 (Version None)
Quarter: 2008Q4

REPORT INFORMATION
  Report Type: 
  Country: None (occurrence: None)
  Receive Date: 20081218
  Receipt Date: 20031201
  Transmission Date: 20090506
  Serious: Yes (Death, Other)
  Sender: FDA-Public Use
  Company Number: US-ROCHE-352953

PATIENT
  Age: 73 Year
  Sex: Male
  Weight: 76.2 kg

DRUGS (9)
  1. CAPECITABINE [Suspect]
     Indication: PANCREATIC CARCINOMA METASTATIC
     Dosage: GIVEN ON DAYS 1-14 EVERY 3 WEEK CYCLE.
     Route: 048
     Dates: start: 20031106, end: 20031114
  2. DOCETAXEL [Suspect]
     Indication: PANCREATIC CARCINOMA METASTATIC
     Dosage: GIVEN ON DAY 8 OF EACH 3 WEEK CYCLE.
     Route: 042
     Dates: start: 20031113, end: 20031114
  3. HYDROCHLOROTHIAZIDE [Concomitant]
     Route: 048
     Dates: start: 20031113, end: 20031114
  4. CELEXA [Concomitant]
     Route: 048
     Dates: start: 20031113, end: 20031114
  5. ATENOLOL [Concomitant]
     Route: 048
     Dates: start: 20031113, end: 20031114
  6. SOLU-MEDROL [Concomitant]
     Route: 042
     Dates: start: 20031113, end: 20031113
  7. POTASSIUM CHLORIDE [Concomitant]
     Route: 048
     Dates: start: 20031113, end: 20031113
  8. CIPROFLOXACIN HCL [Concomitant]
     Route: 048
     Dates: start: 20031113, end: 20031113
  9. DICLOXACILLIN [Concomitant]
     Route: 048
     Dates: start: 20031113

REACTIONS (2)
  - ARRHYTHMIA [None]
  - VENOUS THROMBOSIS LIMB [None]
